FAERS Safety Report 13674229 (Version 2)
Quarter: 2017Q2

REPORT INFORMATION
  Report Type: Spontaneous
  Country: FR (occurrence: FR)
  Receive Date: 20170621
  Receipt Date: 20170630
  Transmission Date: 20170830
  Serious: Yes (Other)
  Sender: FDA-Public Use
  Company Number: FR-BAYER-2017-116386

PATIENT
  Age: 30 Year
  Sex: Female

DRUGS (1)
  1. MIRENA [Suspect]
     Active Substance: LEVONORGESTREL
     Indication: CONTRACEPTION
     Dosage: 20 MCG/24HR, CONT
     Route: 015

REACTIONS (16)
  - Loss of libido [Not Recovered/Not Resolved]
  - Breast swelling [Unknown]
  - Breast cyst [Unknown]
  - Acne [Unknown]
  - Fatigue [Not Recovered/Not Resolved]
  - Breast pain [Not Recovered/Not Resolved]
  - Fibroadenoma of breast [Unknown]
  - Headache [Not Recovered/Not Resolved]
  - Migraine [Unknown]
  - Depression [Not Recovered/Not Resolved]
  - Alopecia [Not Recovered/Not Resolved]
  - Diffuse alopecia [Not Recovered/Not Resolved]
  - Ovarian cyst [Not Recovered/Not Resolved]
  - Pelvic pain [Not Recovered/Not Resolved]
  - Irritability [Not Recovered/Not Resolved]
  - Abdominal distension [Not Recovered/Not Resolved]
